FAERS Safety Report 14482237 (Version 4)
Quarter: 2018Q3

REPORT INFORMATION
  Report Type: Report from Study
  Country: None (occurrence: DE)
  Receive Date: 20180202
  Receipt Date: 20180712
  Transmission Date: 20181010
  Serious: Yes (Other)
  Sender: FDA-Public Use
  Company Number: DE-BAUSCH-BL-2018-001917

PATIENT
  Sex: Female
  Weight: 74 kg

DRUGS (70)
  1. DEXAMETHASONE. [Suspect]
     Active Substance: DEXAMETHASONE
     Route: 065
     Dates: start: 20170821, end: 20170821
  2. DEXAMETHASONE. [Suspect]
     Active Substance: DEXAMETHASONE
     Route: 065
     Dates: start: 20171106, end: 20171106
  3. DEXAMETHASONE. [Suspect]
     Active Substance: DEXAMETHASONE
     Route: 065
     Dates: start: 20171113, end: 20171113
  4. DEXAMETHASONE. [Suspect]
     Active Substance: DEXAMETHASONE
     Route: 065
     Dates: start: 20171218, end: 20171218
  5. KYPROLIS [Suspect]
     Active Substance: CARFILZOMIB
     Route: 042
     Dates: start: 20170904, end: 20170905
  6. KYPROLIS [Suspect]
     Active Substance: CARFILZOMIB
     Route: 042
     Dates: start: 20171218, end: 20171219
  7. KYPROLIS [Suspect]
     Active Substance: CARFILZOMIB
     Route: 042
     Dates: start: 20180205, end: 20180206
  8. KYPROLIS [Suspect]
     Active Substance: CARFILZOMIB
     Route: 042
     Dates: start: 20180226, end: 20180227
  9. KYPROLIS [Suspect]
     Active Substance: CARFILZOMIB
     Route: 042
     Dates: start: 20180404, end: 20180405
  10. REVLIMID [Suspect]
     Active Substance: LENALIDOMIDE
     Route: 065
     Dates: start: 20170724, end: 20170813
  11. IBUPROFEN. [Concomitant]
     Active Substance: IBUPROFEN
     Indication: PROPHYLAXIS
     Dosage: 600 MG, AS NECESSARY
  12. BIFITERAL [Concomitant]
     Active Substance: LACTULOSE
     Indication: PROPHYLAXIS
     Dosage: 10 ML, AS NECESSARY
  13. DEXAMETHASONE. [Suspect]
     Active Substance: DEXAMETHASONE
     Route: 065
     Dates: start: 20170717, end: 20170717
  14. DEXAMETHASONE. [Suspect]
     Active Substance: DEXAMETHASONE
     Route: 065
     Dates: start: 20170814, end: 20170814
  15. DEXAMETHASONE. [Suspect]
     Active Substance: DEXAMETHASONE
     Route: 065
     Dates: start: 20171004, end: 20171004
  16. KYPROLIS [Suspect]
     Active Substance: CARFILZOMIB
     Indication: PLASMA CELL MYELOMA
     Route: 042
     Dates: start: 20170626, end: 20170627
  17. KYPROLIS [Suspect]
     Active Substance: CARFILZOMIB
     Route: 042
     Dates: start: 20171127, end: 20171128
  18. KYPROLIS [Suspect]
     Active Substance: CARFILZOMIB
     Route: 042
     Dates: start: 20180122, end: 20180123
  19. CLEXANE [Concomitant]
     Active Substance: ENOXAPARIN SODIUM
     Indication: PROPHYLAXIS
     Dates: start: 20150611
  20. DEXAMETHASONE. [Suspect]
     Active Substance: DEXAMETHASONE
     Route: 065
     Dates: start: 20170724, end: 20170724
  21. KYPROLIS [Suspect]
     Active Substance: CARFILZOMIB
     Route: 042
     Dates: start: 20170710, end: 20170711
  22. KYPROLIS [Suspect]
     Active Substance: CARFILZOMIB
     Route: 042
     Dates: start: 20170807, end: 20170808
  23. KYPROLIS [Suspect]
     Active Substance: CARFILZOMIB
     Route: 042
     Dates: start: 20170925, end: 20170926
  24. KYPROLIS [Suspect]
     Active Substance: CARFILZOMIB
     Route: 042
     Dates: start: 20171004, end: 20171005
  25. KYPROLIS [Suspect]
     Active Substance: CARFILZOMIB
     Route: 042
     Dates: start: 20171211, end: 20171212
  26. REVLIMID [Suspect]
     Active Substance: LENALIDOMIDE
     Route: 065
     Dates: start: 20180122, end: 20180210
  27. DEXAMETHASONE. [Suspect]
     Active Substance: DEXAMETHASONE
     Route: 065
     Dates: start: 20170703, end: 20170703
  28. DEXAMETHASONE. [Suspect]
     Active Substance: DEXAMETHASONE
     Route: 065
     Dates: start: 20170710, end: 20170710
  29. DEXAMETHASONE. [Suspect]
     Active Substance: DEXAMETHASONE
     Route: 065
     Dates: start: 20170731, end: 20170731
  30. DEXAMETHASONE. [Suspect]
     Active Substance: DEXAMETHASONE
     Route: 065
     Dates: start: 20171009, end: 20171009
  31. DEXAMETHASONE. [Suspect]
     Active Substance: DEXAMETHASONE
     Route: 065
     Dates: start: 20171016, end: 20171016
  32. KYPROLIS [Suspect]
     Active Substance: CARFILZOMIB
     Route: 042
     Dates: start: 20170821, end: 20170822
  33. KYPROLIS [Suspect]
     Active Substance: CARFILZOMIB
     Route: 042
     Dates: start: 20171023, end: 20171024
  34. REVLIMID [Suspect]
     Active Substance: LENALIDOMIDE
     Route: 065
     Dates: start: 20171113, end: 20171203
  35. REVLIMID [Suspect]
     Active Substance: LENALIDOMIDE
     Route: 065
     Dates: start: 20180319, end: 20180408
  36. ACICLOVIR [Concomitant]
     Active Substance: ACYCLOVIR
     Indication: PROPHYLAXIS
     Dates: start: 20150611
  37. DEXAMETHASONE. [Suspect]
     Active Substance: DEXAMETHASONE
     Route: 065
     Dates: start: 20170918, end: 20170918
  38. DEXAMETHASONE. [Suspect]
     Active Substance: DEXAMETHASONE
     Route: 065
     Dates: start: 20170925, end: 20170925
  39. DEXAMETHASONE. [Suspect]
     Active Substance: DEXAMETHASONE
     Route: 065
     Dates: start: 20171127, end: 20171127
  40. KYPROLIS [Suspect]
     Active Substance: CARFILZOMIB
     Route: 042
     Dates: start: 20171113, end: 20171114
  41. KYPROLIS [Suspect]
     Active Substance: CARFILZOMIB
     Route: 042
     Dates: start: 20171120, end: 20171121
  42. KYPROLIS [Suspect]
     Active Substance: CARFILZOMIB
     Route: 042
     Dates: start: 20180129, end: 20180130
  43. REVLIMID [Suspect]
     Active Substance: LENALIDOMIDE
     Indication: PLASMA CELL MYELOMA
     Route: 065
     Dates: start: 20170626, end: 20170716
  44. REVLIMID [Suspect]
     Active Substance: LENALIDOMIDE
     Route: 065
     Dates: start: 20170821, end: 20170910
  45. REVLIMID [Suspect]
     Active Substance: LENALIDOMIDE
     Route: 065
     Dates: start: 20171016, end: 20171105
  46. COTRIM [Concomitant]
     Active Substance: SULFAMETHOXAZOLE\TRIMETHOPRIM
     Indication: PROPHYLAXIS
     Dosage: 800 MG, THREE TIMES PER WEEK?2400 MG/WEEK
     Dates: start: 20150611
  47. DEXAMETHASONE. [Suspect]
     Active Substance: DEXAMETHASONE
     Indication: PLASMA CELL MYELOMA
     Route: 065
     Dates: start: 20170626, end: 20170626
  48. DEXAMETHASONE. [Suspect]
     Active Substance: DEXAMETHASONE
     Route: 065
     Dates: start: 20170828, end: 20170828
  49. DEXAMETHASONE. [Suspect]
     Active Substance: DEXAMETHASONE
     Route: 065
     Dates: start: 20170904, end: 20170904
  50. DEXAMETHASONE. [Suspect]
     Active Substance: DEXAMETHASONE
     Route: 065
     Dates: start: 20171023, end: 20171023
  51. DEXAMETHASONE. [Suspect]
     Active Substance: DEXAMETHASONE
     Route: 065
     Dates: start: 20171211, end: 20171211
  52. REVLIMID [Suspect]
     Active Substance: LENALIDOMIDE
     Route: 065
     Dates: start: 20180219, end: 20180304
  53. DEXAMETHASONE. [Suspect]
     Active Substance: DEXAMETHASONE
     Route: 065
     Dates: start: 20170911, end: 20170911
  54. DEXAMETHASONE. [Suspect]
     Active Substance: DEXAMETHASONE
     Route: 065
     Dates: start: 20171120, end: 20171120
  55. KYPROLIS [Suspect]
     Active Substance: CARFILZOMIB
     Route: 042
     Dates: start: 20170703, end: 20170704
  56. KYPROLIS [Suspect]
     Active Substance: CARFILZOMIB
     Route: 042
     Dates: start: 20170731, end: 20170801
  57. KYPROLIS [Suspect]
     Active Substance: CARFILZOMIB
     Route: 042
     Dates: start: 20170828, end: 20170829
  58. KYPROLIS [Suspect]
     Active Substance: CARFILZOMIB
     Route: 042
     Dates: start: 20171016, end: 20171017
  59. KYPROLIS [Suspect]
     Active Substance: CARFILZOMIB
     Route: 042
     Dates: start: 20171102, end: 20171103
  60. KYPROLIS [Suspect]
     Active Substance: CARFILZOMIB
     Route: 042
     Dates: start: 20180319, end: 20180320
  61. KYPROLIS [Suspect]
     Active Substance: CARFILZOMIB
     Route: 042
     Dates: start: 20180326, end: 20180327
  62. REVLIMID [Suspect]
     Active Substance: LENALIDOMIDE
     Route: 065
     Dates: start: 20171211, end: 20171231
  63. PAMIFOS [Concomitant]
     Active Substance: PAMIDRONATE DISODIUM
     Indication: PROPHYLAXIS
     Dosage: 90 MG, QMO
     Dates: start: 20150611
  64. DEXAMETHASONE. [Suspect]
     Active Substance: DEXAMETHASONE
     Route: 065
     Dates: start: 20170807, end: 20170807
  65. DEXAMETHASONE. [Suspect]
     Active Substance: DEXAMETHASONE
     Route: 065
     Dates: start: 20171030, end: 20171030
  66. DEXAMETHASONE. [Suspect]
     Active Substance: DEXAMETHASONE
     Route: 065
     Dates: start: 20171204, end: 20171204
  67. KYPROLIS [Suspect]
     Active Substance: CARFILZOMIB
     Route: 042
     Dates: start: 20170724, end: 20170725
  68. KYPROLIS [Suspect]
     Active Substance: CARFILZOMIB
     Route: 042
     Dates: start: 20170918, end: 20170919
  69. KYPROLIS [Suspect]
     Active Substance: CARFILZOMIB
     Route: 042
     Dates: start: 20180219, end: 20180220
  70. REVLIMID [Suspect]
     Active Substance: LENALIDOMIDE
     Route: 065
     Dates: start: 20170918, end: 20171008

REACTIONS (3)
  - Thrombocytopenia [Recovered/Resolved]
  - Leukopenia [Recovered/Resolved]
  - Anaemia [Recovered/Resolved]

NARRATIVE: CASE EVENT DATE: 20171218
